FAERS Safety Report 18168916 (Version 1)
Quarter: 2020Q3

REPORT INFORMATION
  Report Type: Spontaneous
  Country: US (occurrence: US)
  Receive Date: 20200818
  Receipt Date: 20200818
  Transmission Date: 20201103
  Serious: Yes (Death)
  Sender: FDA-Public Use
  Company Number: None

PATIENT
  Age: 81 Year
  Sex: Female

DRUGS (17)
  1. PREDNISONE. [Concomitant]
     Active Substance: PREDNISONE
  2. BUMETANIDE. [Concomitant]
     Active Substance: BUMETANIDE
  3. AMBRISENTAN 10 MG TABLETS 30/BO: 10MG [Suspect]
     Active Substance: AMBRISENTAN
     Indication: PULMONARY ARTERIAL HYPERTENSION
     Route: 048
     Dates: start: 201707, end: 202007
  4. TADALAFIL. [Concomitant]
     Active Substance: TADALAFIL
  5. GABAPENTIN. [Concomitant]
     Active Substance: GABAPENTIN
  6. ASTELIN [Concomitant]
     Active Substance: AZELASTINE HYDROCHLORIDE
  7. DIGOXIN. [Concomitant]
     Active Substance: DIGOXIN
  8. CALCIUM [Concomitant]
     Active Substance: CALCIUM
  9. CARBONATE [Concomitant]
  10. MEMANTINE. [Concomitant]
     Active Substance: MEMANTINE
  11. DULOXETINE. [Concomitant]
     Active Substance: DULOXETINE
  12. MORPHINE [Concomitant]
     Active Substance: MORPHINE
  13. ADVAIR DISK US [Concomitant]
  14. METOCLOPRAMIDE. [Concomitant]
     Active Substance: METOCLOPRAMIDE
  15. MONTELUKAST [Concomitant]
     Active Substance: MONTELUKAST SODIUM
  16. TRAMADOL. [Concomitant]
     Active Substance: TRAMADOL
  17. MAGNESIUM OXIDE. [Concomitant]
     Active Substance: MAGNESIUM OXIDE

REACTIONS (4)
  - Haematoma [None]
  - Confusional state [None]
  - Fatigue [None]
  - General physical health deterioration [None]

NARRATIVE: CASE EVENT DATE: 20200726
